FAERS Safety Report 19982288 (Version 1)
Quarter: 2021Q4

REPORT INFORMATION
  Report Type: Spontaneous
  Country: US (occurrence: US)
  Receive Date: 20211021
  Receipt Date: 20211021
  Transmission Date: 20220303
  Serious: Yes (Other)
  Sender: FDA-Public Use
  Company Number: US-GLAXOSMITHKLINE-US2021GSK218113

PATIENT
  Sex: Male

DRUGS (2)
  1. RANITIDINE [Suspect]
     Active Substance: RANITIDINE
     Indication: Hepatic failure
     Dosage: UNK, QD
     Route: 065
     Dates: start: 201501, end: 201701
  2. RANITIDINE [Suspect]
     Active Substance: RANITIDINE
     Indication: Hepatic failure
     Dosage: UNK, QD
     Route: 065
     Dates: start: 201501, end: 201701

REACTIONS (1)
  - Hepatic cancer [Unknown]
